FAERS Safety Report 24610693 (Version 1)
Quarter: 2024Q4

REPORT INFORMATION
  Report Type: Report from Study
  Country: CA (occurrence: CA)
  Receive Date: 20241112
  Receipt Date: 20241112
  Transmission Date: 20250114
  Serious: Yes (Hospitalization, Other)
  Sender: HLS THERAPEUTICS
  Company Number: CA-HLS-202402656

PATIENT
  Age: 70 Year
  Sex: Male

DRUGS (1)
  1. CLOZARIL [Suspect]
     Active Substance: CLOZAPINE
     Indication: Product used for unknown indication
     Route: 048
     Dates: start: 20240411

REACTIONS (9)
  - Toe amputation [Recovered/Resolved]
  - Blood pressure increased [Unknown]
  - Bone debridement [Unknown]
  - Diabetes mellitus [Unknown]
  - Lethargy [Unknown]
  - Incoherent [Unknown]
  - Postoperative wound infection [Recovered/Resolved]
  - Asthenia [Unknown]
  - Weight decreased [Unknown]

NARRATIVE: CASE EVENT DATE: 20240901
